FAERS Safety Report 5669894-6 (Version None)
Quarter: 2008Q1

REPORT INFORMATION
  Report Type: 
  Country: None (occurrence: None)
  Receive Date: 20080314
  Receipt Date: 20080314
  Transmission Date: 20080703
  Serious: Yes (Other)
  Sender: FDA-Public Use
  Company Number: None

PATIENT
  Age: 44 Year
  Sex: Female
  Weight: 78.0187 kg

DRUGS (3)
  1. TAMIFLU [Suspect]
     Indication: INFLUENZA
     Dosage: 75 MG BID PO
     Route: 048
     Dates: start: 20080209, end: 20080303
  2. PHENERGAN HCL [Concomitant]
  3. CODEINE COUGH MED [Concomitant]

REACTIONS (5)
  - FLUID RETENTION [None]
  - GLOSSODYNIA [None]
  - HYPOAESTHESIA [None]
  - RASH GENERALISED [None]
  - SENSATION OF HEAVINESS [None]
